FAERS Safety Report 10602595 (Version 1)
Quarter: 2014Q4

REPORT INFORMATION
  Report Type: Spontaneous
  Country: US (occurrence: US)
  Receive Date: 20141124
  Receipt Date: 20141124
  Transmission Date: 20150529
  Serious: No
  Sender: FDA-Public Use
  Company Number: US-NOVEN-14US010033

PATIENT
  Sex: Female

DRUGS (3)
  1. MINIVELLE [Suspect]
     Active Substance: ESTRADIOL
     Indication: OESTROGEN THERAPY
     Dosage: 0.1 MG/DAY, TWICE WEEKLY
     Route: 062
     Dates: start: 2013
  2. MINIVELLE [Suspect]
     Active Substance: ESTRADIOL
     Indication: FATIGUE
  3. MINIVELLE [Suspect]
     Active Substance: ESTRADIOL
     Indication: INSOMNIA

REACTIONS (5)
  - Drug prescribing error [Not Recovered/Not Resolved]
  - Wrong technique in drug usage process [Not Recovered/Not Resolved]
  - Drug ineffective for unapproved indication [Not Recovered/Not Resolved]
  - Off label use [Not Recovered/Not Resolved]
  - Product quality issue [Not Recovered/Not Resolved]

NARRATIVE: CASE EVENT DATE: 2013
